FAERS Safety Report 21872066 (Version 1)
Quarter: 2023Q1

REPORT INFORMATION
  Report Type: Spontaneous
  Country: CN (occurrence: CN)
  Receive Date: 20230117
  Receipt Date: 20230117
  Transmission Date: 20230418
  Serious: Yes (Other)
  Sender: FDA-Public Use
  Company Number: None

PATIENT
  Age: 35 Year
  Sex: Female
  Weight: 57 kg

DRUGS (8)
  1. CYCLOPHOSPHAMIDE [Suspect]
     Active Substance: CYCLOPHOSPHAMIDE
     Indication: Invasive breast carcinoma
     Dosage: 0.72 G, QD, DILUTED WITH 100 ML OF 0.9 PERCENT SODIUM CHLORIDE, TC REGIMEN, THIRD CYCLE CHEMOTHERAPY
     Route: 041
     Dates: start: 20221209, end: 20221209
  2. CYCLOPHOSPHAMIDE [Suspect]
     Active Substance: CYCLOPHOSPHAMIDE
     Indication: Chemotherapy
  3. SODIUM CHLORIDE [Suspect]
     Active Substance: SODIUM CHLORIDE
     Indication: Medication dilution
     Dosage: 100 ML, QD , USED TO DILUTE 20 MG DOCETAXEL, AT 08:26
     Route: 041
     Dates: start: 20221209, end: 20221209
  4. DOCETAXEL [Suspect]
     Active Substance: DOCETAXEL
     Indication: Invasive breast carcinoma
     Dosage: 20 MG, QD, DILUTED WITH 100 ML 0.9 PERCENT SODIUM CHLORIDE, TC REGIMEN, THIRD CYCLE CHEMOTHERAPY
     Route: 041
     Dates: start: 20221209, end: 20221209
  5. DOCETAXEL [Suspect]
     Active Substance: DOCETAXEL
     Indication: Chemotherapy
     Dosage: 70 MG, QD, DILUTED WITH 250 ML 0.9 PERCENT SODIUM CHLORIDE, TC REGIMEN, THIRD CYCLE CHEMOTHERAPY, FU
     Route: 041
     Dates: start: 20221209, end: 20221209
  6. SODIUM CHLORIDE [Suspect]
     Active Substance: SODIUM CHLORIDE
     Indication: Chemotherapy
     Dosage: 100 ML, QD , USED TO DILUTE 0.72 G CYCLOPHOSPHAMIDE, THIRD CYCLE CHEMOTHERAPY
     Route: 041
     Dates: start: 20221209, end: 20221209
  7. SODIUM CHLORIDE [Suspect]
     Active Substance: SODIUM CHLORIDE
     Dosage: 250 ML, QD , USED TO DILUTE 70 MG DOCETAXEL, THIRD CYCLE OF CHEMOTHERAPY
     Route: 041
     Dates: start: 20221209, end: 20221209
  8. GRANULOCYTE COLONY-STIMULATING FACTOR NOS [Concomitant]
     Active Substance: GRANULOCYTE COLONY-STIMULATING FACTOR NOS
     Indication: Prophylaxis
     Dosage: 150 MICROGRAM
     Route: 058
     Dates: start: 20221212, end: 20221212

REACTIONS (2)
  - Neutrophil count decreased [Recovering/Resolving]
  - White blood cell count decreased [Recovering/Resolving]

NARRATIVE: CASE EVENT DATE: 20221215
